FAERS Safety Report 23835017 (Version 1)
Quarter: 2024Q2

REPORT INFORMATION
  Report Type: Spontaneous
  Country: US (occurrence: US)
  Receive Date: 20240509
  Receipt Date: 20240509
  Transmission Date: 20240715
  Serious: Yes (Hospitalization)
  Sender: FDA-Public Use
  Company Number: US-GLAXOSMITHKLINE-US2024057272

PATIENT
  Age: 6 Decade
  Sex: Female

DRUGS (6)
  1. ZEJULA [Suspect]
     Active Substance: NIRAPARIB
     Indication: Ovarian cancer
     Dosage: UNK
     Dates: start: 20240301, end: 20240412
  2. LORAZEPAM [Concomitant]
     Active Substance: LORAZEPAM
     Indication: Ovarian cancer
     Dosage: UNK
  3. GLUTAMINE [Concomitant]
     Active Substance: GLUTAMINE
     Indication: Ovarian cancer
     Dosage: UNK
  4. FOLIC ACID [Concomitant]
     Active Substance: FOLIC ACID
     Indication: Ovarian cancer
     Dosage: UNK
  5. IRON [Concomitant]
     Active Substance: IRON
     Indication: Ovarian cancer
     Dosage: UNK
  6. METOCLOPRAMIDE [Concomitant]
     Active Substance: METOCLOPRAMIDE
     Indication: Ovarian cancer
     Dosage: UNK

REACTIONS (1)
  - Platelet count decreased [Recovered/Resolved]

NARRATIVE: CASE EVENT DATE: 20240409
